FAERS Safety Report 14910412 (Version 1)
Quarter: 2018Q2

REPORT INFORMATION
  Report Type: Spontaneous
  Country: FR (occurrence: FR)
  Receive Date: 20180517
  Receipt Date: 20180517
  Transmission Date: 20180711
  Serious: Yes (Congenital Anomaly, Other)
  Sender: FDA-Public Use
  Company Number: FR-MYLANLABS-2018M1032221

PATIENT
  Sex: Male
  Weight: 3.63 kg

DRUGS (1)
  1. SOTALOL. [Suspect]
     Active Substance: SOTALOL
     Indication: VENTRICULAR ARRHYTHMIA
     Dosage: 80 MG, QD
     Route: 064
     Dates: start: 20170423, end: 201711

REACTIONS (2)
  - Foetal exposure during pregnancy [Recovered/Resolved]
  - Ear malformation [Recovered/Resolved with Sequelae]

NARRATIVE: CASE EVENT DATE: 20180118
